FAERS Safety Report 10966325 (Version 1)
Quarter: 2015Q1

REPORT INFORMATION
  Report Type: Spontaneous
  Country: US (occurrence: None)
  Receive Date: 20150226
  Receipt Date: 20150226
  Transmission Date: 20150721
  Serious: No
  Sender: FDA-Public Use
  Company Number: TPA2010A04767

PATIENT

DRUGS (2)
  1. ULORIC [Suspect]
     Active Substance: FEBUXOSTAT
  2. UNKNOWN STATIN (ALL OTHER THERAPEUTIC PRODUCTS) [Concomitant]

REACTIONS (3)
  - Pruritus [None]
  - Hepatic enzyme increased [None]
  - Rash [None]
